FAERS Safety Report 5252024-2 (Version None)
Quarter: 2007Q1

REPORT INFORMATION
  Report Type: 
  Country: None (occurrence: None)
  Receive Date: 20070226
  Receipt Date: 20070208
  Transmission Date: 20070707
  Serious: Yes (Other)
  Sender: FDA-Public Use
  Company Number: DSA_29381_2007

PATIENT
  Age: 40 Year
  Sex: Male

DRUGS (16)
  1. LORAZEPAM [Suspect]
     Indication: MANIA
     Dosage: DF Q DAY
     Dates: start: 20020108, end: 20020110
  2. LORAZEPAM [Suspect]
     Indication: PSYCHOTIC DISORDER
     Dosage: DF Q DAY
     Dates: start: 20020108, end: 20020110
  3. LORAZEPAM [Suspect]
     Indication: MANIA
     Dosage: 4 MG, Q DAY PO
     Route: 048
     Dates: start: 20020111, end: 20020125
  4. LORAZEPAM [Suspect]
     Indication: PSYCHOTIC DISORDER
     Dosage: 4 MG, Q DAY PO
     Route: 048
     Dates: start: 20020111, end: 20020125
  5. LORAZEPAM [Suspect]
     Indication: MANIA
     Dosage: 10 MG Q DAY PO
     Route: 048
     Dates: start: 20020126, end: 20020129
  6. LORAZEPAM [Suspect]
     Indication: PSYCHOTIC DISORDER
     Dosage: 10 MG Q DAY PO
     Route: 048
     Dates: start: 20020126, end: 20020129
  7. LORAZEPAM [Suspect]
     Indication: MANIA
     Dosage: 4 MG Q DAY PO
     Route: 048
     Dates: start: 20020206, end: 20020211
  8. LORAZEPAM [Suspect]
     Indication: PSYCHOTIC DISORDER
     Dosage: 4 MG Q DAY PO
     Route: 048
     Dates: start: 20020206, end: 20020211
  9. LORAZEPAM [Suspect]
     Indication: MANIA
     Dosage: 3 MG Q DAY PO
     Route: 048
     Dates: start: 20020212
  10. LORAZEPAM [Suspect]
     Indication: PSYCHOTIC DISORDER
     Dosage: 3 MG Q DAY PO
     Route: 048
     Dates: start: 20020212
  11. QUILONORM /00033702/ [Suspect]
     Dosage: 450 MG Q DAY PO
     Route: 048
     Dates: start: 20020129, end: 20020101
  12. QUILONORM /00033702/ [Suspect]
     Dosage: 675 MG Q DAY PO
     Route: 048
     Dates: start: 20020131, end: 20020201
  13. QUILONORM /00033702/ [Suspect]
     Dosage: 900 MG Q DAY PO
     Route: 048
     Dates: start: 20020202, end: 20020211
  14. QUILONORM /00033702/ [Suspect]
     Dosage: VAR Q DAY PO
     Route: 048
     Dates: start: 20020212
  15. ZYPREXA [Suspect]
     Dosage: 20 MG Q DAY PO
     Route: 048
     Dates: start: 20020122, end: 20020225
  16. ZYPREXA [Suspect]
     Dosage: 30 MG Q DAY PO
     Route: 048
     Dates: start: 20020226

REACTIONS (6)
  - ALANINE AMINOTRANSFERASE INCREASED [None]
  - ASPARTATE AMINOTRANSFERASE INCREASED [None]
  - BODY MASS INDEX INCREASED [None]
  - HEPATIC ENZYME INCREASED [None]
  - LIPASE INCREASED [None]
  - WEIGHT INCREASED [None]
